FAERS Safety Report 12744956 (Version 1)
Quarter: 2016Q3

REPORT INFORMATION
  Report Type: Other
  Country: JP (occurrence: JP)
  Receive Date: 20160915
  Receipt Date: 20160915
  Transmission Date: 20161109
  Serious: No
  Sender: FDA-Public Use
  Company Number: JP-NOVEL LABORATORIES, INC-2016-03466

PATIENT
  Age: 15 Year
  Sex: Female
  Weight: 38.2 kg

DRUGS (1)
  1. VORICONAZOLE. [Suspect]
     Active Substance: VORICONAZOLE
     Indication: BRONCHOPULMONARY ASPERGILLOSIS
     Route: 048

REACTIONS (1)
  - Photophobia [Recovered/Resolved]
